FAERS Safety Report 5369346-7 (Version None)
Quarter: 2007Q2

REPORT INFORMATION
  Report Type: 
  Country: None (occurrence: None)
  Receive Date: 20070625
  Receipt Date: 20070326
  Transmission Date: 20071010
  Serious: Yes (Other)
  Sender: FDA-Public Use
  Company Number: US-ASTRAZENECA-2007UW06211

PATIENT
  Age: 61 Year
  Sex: Male
  Weight: 88.5 kg

DRUGS (7)
  1. CRESTOR [Suspect]
     Indication: BLOOD CHOLESTEROL
     Dates: start: 20041101
  2. METRAZOL INJ [Concomitant]
  3. FELODIPINE [Concomitant]
  4. GLIPIZIDE [Concomitant]
  5. HYDROCHLOROTHIAZIDE [Concomitant]
  6. CARDURA [Concomitant]
  7. TEMAZEPAM [Concomitant]

REACTIONS (3)
  - ASTHENIA [None]
  - HEPATIC ENZYME INCREASED [None]
  - MYALGIA [None]
